FAERS Safety Report 19628555 (Version 1)
Quarter: 2021Q3

REPORT INFORMATION
  Report Type: Spontaneous
  Country: US (occurrence: US)
  Receive Date: 20210729
  Receipt Date: 20210729
  Transmission Date: 20211014
  Serious: Yes (Disabling)
  Sender: FDA-Public Use
  Company Number: None

PATIENT
  Age: 45 Year
  Sex: Male
  Weight: 63 kg

DRUGS (7)
  1. CALCIUM [Concomitant]
     Active Substance: CALCIUM
  2. AMINOS [Concomitant]
  3. VITAMINS  C, D [Concomitant]
  4. ZINC. [Concomitant]
     Active Substance: ZINC
  5. MULTIVITAMIN [Concomitant]
     Active Substance: VITAMINS
  6. INVEGA [Suspect]
     Active Substance: PALIPERIDONE
     Indication: SCHIZOPHRENIA
     Route: 030
  7. SUDAFED [Concomitant]
     Active Substance: PSEUDOEPHEDRINE HYDROCHLORIDE

REACTIONS (1)
  - Feeling abnormal [None]

NARRATIVE: CASE EVENT DATE: 20210606
